FAERS Safety Report 7633521-9 (Version None)
Quarter: 2011Q3

REPORT INFORMATION
  Report Type: 
  Country: None (occurrence: None)
  Receive Date: 20110725
  Receipt Date: 20110715
  Transmission Date: 20111222
  Serious: Yes (Other)
  Sender: FDA-Public Use
  Company Number: JP-ASTRAZENECA-2011SE43318

PATIENT
  Age: 83 Year
  Sex: Male
  Weight: 51 kg

DRUGS (4)
  1. GLYCYRON [Concomitant]
     Indication: HEPATIC FUNCTION ABNORMAL
     Route: 048
     Dates: start: 20110502, end: 20110530
  2. CASODEX [Suspect]
     Route: 048
     Dates: start: 20110531
  3. CASODEX [Suspect]
     Indication: PROSTATE CANCER
     Route: 048
     Dates: start: 20110124, end: 20110403
  4. URSO 250 [Concomitant]
     Indication: HEPATIC FUNCTION ABNORMAL
     Route: 048
     Dates: start: 20110502

REACTIONS (1)
  - HEPATIC FUNCTION ABNORMAL [None]
